FAERS Safety Report 14945808 (Version 11)
Quarter: 2019Q2

REPORT INFORMATION
  Report Type: Report from Study
  Country: DE (occurrence: DE)
  Receive Date: 20180529
  Receipt Date: 20190528
  Transmission Date: 20190711
  Serious: Yes (Hospitalization, Other)
  Sender: FDA-Public Use
  Company Number: DE-ROCHE-2124968

PATIENT
  Age: 61 Year
  Sex: Female
  Weight: 52.5 kg

DRUGS (34)
  1. PALONOSETRON. [Concomitant]
     Active Substance: PALONOSETRON HYDROCHLORIDE
     Indication: VOMITING
     Route: 065
     Dates: start: 20180503, end: 20180503
  2. ANIDULAFUNGIN [Concomitant]
     Active Substance: ANIDULAFUNGIN
     Route: 065
     Dates: start: 20180518, end: 20180518
  3. PREDNISOLON [PREDNISOLONE] [Concomitant]
     Active Substance: PREDNISOLONE
     Indication: GENERAL PHYSICAL HEALTH DETERIORATION
     Route: 048
     Dates: start: 20180516, end: 20180601
  4. URBASON [METHYLPREDNISOLONE] [Concomitant]
     Active Substance: METHYLPREDNISOLONE
     Dosage: TAPER CORTICOIDS
     Route: 048
     Dates: start: 20180602, end: 20180604
  5. CARBOPLATIN. [Suspect]
     Active Substance: CARBOPLATIN
     Indication: OVARIAN CANCER
     Dosage: DOSE: TO ACHIEVE A TARGET AREA UNDER THE CURVE (AUC) OF 6 MILLIGRAMS PER MILLILITER*MINUTE (MG/ML*MI
     Route: 042
     Dates: start: 20180503
  6. PANTOZOL [Concomitant]
     Active Substance: PANTOPRAZOLE SODIUM
     Indication: PAIN
     Route: 065
     Dates: start: 20180623
  7. PALLADON [Concomitant]
     Active Substance: HYDROMORPHONE
     Indication: GUILLAIN-BARRE SYNDROME
     Route: 065
     Dates: start: 20180604
  8. DALTEPARIN SODIUM [Concomitant]
     Active Substance: DALTEPARIN SODIUM
     Route: 065
     Dates: start: 20180511, end: 2019
  9. RANITIDIN [Concomitant]
     Active Substance: RANITIDINE HYDROCHLORIDE
     Route: 065
     Dates: start: 20180503, end: 20180503
  10. ATEZOLIZUMAB. [Suspect]
     Active Substance: ATEZOLIZUMAB
     Indication: OVARIAN CANCER
     Dosage: MOST RECENT DOSE OF BLINDED ATEZOLIZUMAB PRIOR TO SERIOUS ADVERSE EVENT (SAE) ONSET: 03/MAY/2018
     Route: 042
     Dates: start: 20180503
  11. PALLADON [Concomitant]
     Active Substance: HYDROMORPHONE
     Indication: ABDOMINAL PAIN
     Route: 065
     Dates: start: 20180320, end: 20180604
  12. DALTEPARIN SODIUM [Concomitant]
     Active Substance: DALTEPARIN SODIUM
     Route: 065
     Dates: end: 20180504
  13. APREPITANT. [Concomitant]
     Active Substance: APREPITANT
     Indication: VOMITING
     Route: 065
     Dates: start: 20180503, end: 20180503
  14. FLUCONAZOL [Concomitant]
     Active Substance: FLUCONAZOLE
     Route: 065
     Dates: start: 20180518, end: 20180526
  15. MEROPENEM. [Concomitant]
     Active Substance: MEROPENEM
     Indication: ANTIBIOTIC PROPHYLAXIS
     Route: 065
     Dates: start: 20180516, end: 20180522
  16. NACL [Concomitant]
     Active Substance: SODIUM CHLORIDE
     Dosage: COMPENSATION OF ELECTROLYTES
     Route: 065
     Dates: start: 20180525, end: 2019
  17. PALLADON [Concomitant]
     Active Substance: HYDROMORPHONE
     Indication: PAIN
     Route: 065
     Dates: start: 20180331, end: 20180604
  18. PANTOZOL [Concomitant]
     Active Substance: PANTOPRAZOLE SODIUM
     Indication: NAUSEA
     Route: 065
     Dates: start: 20180416, end: 20180618
  19. DEXAMETHASON [DEXAMETHASONE] [Concomitant]
     Active Substance: DEXAMETHASONE
     Indication: VOMITING
     Route: 042
     Dates: start: 20180503, end: 20180503
  20. FLUCONAZOL [Concomitant]
     Active Substance: FLUCONAZOLE
     Route: 065
     Dates: start: 20180514, end: 20180517
  21. BUTYLSCOPOLAMIN [Concomitant]
     Route: 065
     Dates: start: 20180429, end: 20180429
  22. DIMENHYDRINAT [Concomitant]
     Active Substance: DIMENHYDRINATE
     Indication: NAUSEA
     Route: 065
     Dates: start: 20180429, end: 20180429
  23. NOVAMINSULFON [Concomitant]
     Active Substance: METAMIZOLE
     Indication: PAIN
     Route: 065
     Dates: start: 20180529, end: 2019
  24. PACLITAXEL. [Suspect]
     Active Substance: PACLITAXEL
     Indication: OVARIAN CANCER
     Dosage: MOST RECENT DOSE OF IV PACLITAXEL (278 MG) PRIOR TO SERIOUS ADVERSE EVENT (SAE) ONSET: 03/MAY/2018
     Route: 042
     Dates: start: 20180503
  25. MCP [Concomitant]
     Active Substance: METOCLOPRAMIDE HYDROCHLORIDE
     Indication: NAUSEA
     Route: 065
     Dates: start: 20180320, end: 20180528
  26. DORMICUM [MIDAZOLAM] [Concomitant]
     Active Substance: MIDAZOLAM HYDROCHLORIDE
     Route: 065
     Dates: start: 20180502, end: 20180502
  27. PROPOFOL. [Concomitant]
     Active Substance: PROPOFOL
     Route: 065
     Dates: start: 20180502, end: 20180502
  28. PREDNISOLON [PREDNISOLONE] [Concomitant]
     Active Substance: PREDNISOLONE
     Indication: INFLUENZA LIKE ILLNESS
  29. MEROPENEM. [Concomitant]
     Active Substance: MEROPENEM
     Indication: GENERAL PHYSICAL HEALTH DETERIORATION
  30. CLEMASTIN [Concomitant]
     Active Substance: CLEMASTINE
     Route: 065
     Dates: start: 20180503, end: 20180503
  31. ONDASETRON [ONDANSETRON] [Concomitant]
     Indication: VOMITING
     Route: 065
     Dates: start: 20180513, end: 2019
  32. ALL OTHER THERAPEUTIC PRODUCTS [Concomitant]
     Active Substance: UNSPECIFIED INGREDIENT
     Route: 065
     Dates: start: 20180620
  33. URBASON [METHYLPREDNISOLONE] [Concomitant]
     Active Substance: METHYLPREDNISOLONE
     Dosage: TAPER CORTICOIDS
     Route: 048
     Dates: start: 20180605, end: 20180606
  34. URBASON [METHYLPREDNISOLONE] [Concomitant]
     Active Substance: METHYLPREDNISOLONE
     Dosage: TAPER CORTICOIDS
     Route: 048
     Dates: start: 20180607, end: 20180611

REACTIONS (6)
  - Electrolyte imbalance [Recovered/Resolved]
  - Blood thyroid stimulating hormone decreased [Recovered/Resolved]
  - Guillain-Barre syndrome [Not Recovered/Not Resolved]
  - Atrial fibrillation [Recovered/Resolved]
  - Leukopenia [Recovered/Resolved]
  - General physical health deterioration [Not Recovered/Not Resolved]

NARRATIVE: CASE EVENT DATE: 20180511
